FAERS Safety Report 8466141-7 (Version None)
Quarter: 2012Q2

REPORT INFORMATION
  Report Type: 
  Country: None (occurrence: None)
  Receive Date: 20120626
  Receipt Date: 20120613
  Transmission Date: 20120825
  Serious: No
  Sender: FDA-Public Use
  Company Number: US-ASTRAZENECA-2012SE39821

PATIENT
  Age: 74 Year
  Sex: Female
  Weight: 58.1 kg

DRUGS (6)
  1. VENTOLIN [Concomitant]
  2. BUSPIRONE HCL [Concomitant]
  3. PULMICORT FLEXHALER [Suspect]
     Indication: PULMONARY CONGESTION
     Route: 055
     Dates: start: 20120612
  4. CALCIUM CARBONATE [Concomitant]
     Indication: OSTEOPENIA
  5. AMOXICILLIN [Concomitant]
  6. ATENOLOL [Concomitant]

REACTIONS (4)
  - OFF LABEL USE [None]
  - DRUG DOSE OMISSION [None]
  - WHEEZING [None]
  - ANXIETY [None]
